FAERS Safety Report 6687840-3 (Version None)
Quarter: 2010Q2

REPORT INFORMATION
  Report Type: 
  Country: None (occurrence: None)
  Receive Date: 20100409
  Receipt Date: 20090211
  Transmission Date: 20101027
  Serious: Yes (Hospitalization, Other)
  Sender: FDA-Public Use
  Company Number: AE 2009-028

PATIENT
  Age: 26 Year
  Sex: Male

DRUGS (1)
  1. FAZACLO ODT [Suspect]
     Indication: SCHIZOPHRENIA
     Dosage: 300 MG TWICE DAILY PO
     Route: 048
     Dates: start: 20080506, end: 20090115

REACTIONS (3)
  - CHEST PAIN [None]
  - CONVULSION [None]
  - SALIVARY HYPERSECRETION [None]
